FAERS Safety Report 7861372-9 (Version None)
Quarter: 2011Q4

REPORT INFORMATION
  Report Type: 
  Country: None (occurrence: None)
  Receive Date: 20111027
  Receipt Date: 20111021
  Transmission Date: 20120403
  Serious: Yes (Other)
  Sender: FDA-Public Use
  Company Number: DE-PFIZER INC-2011254698

PATIENT
  Sex: Female

DRUGS (1)
  1. UNASYN [Suspect]
     Dosage: UNK
     Dates: start: 20110101

REACTIONS (1)
  - PARALYSIS [None]
